FAERS Safety Report 10167130 (Version 2)
Quarter: 2014Q2

REPORT INFORMATION
  Report Type: Spontaneous
  Country: DE (occurrence: DE)
  Receive Date: 20140512
  Receipt Date: 20140603
  Transmission Date: 20141212
  Serious: Yes (Other)
  Sender: FDA-Public Use
  Company Number: DE-PFIZER INC-2014127925

PATIENT
  Age: 54 Year
  Sex: Female
  Weight: 70 kg

DRUGS (11)
  1. PANTOZOL [Suspect]
     Dosage: UNK
     Route: 048
  2. PANTOZOL [Suspect]
     Dosage: 1.6 G, SINGLE
     Route: 048
     Dates: start: 20140427
  3. METFORMIN HCL [Suspect]
     Dosage: UNK
     Route: 048
  4. METFORMIN HCL [Suspect]
     Dosage: 180 G, SINGLE
     Route: 048
     Dates: start: 20140427
  5. SIMVASTATIN [Suspect]
     Dosage: UNK
     Route: 048
  6. SIMVASTATIN [Suspect]
     Dosage: 120 MG, SINGLE
     Route: 048
     Dates: start: 20140427
  7. QUETIAPINE FUMARATE [Suspect]
     Dosage: UNK
     Route: 048
  8. QUETIAPINE FUMARATE [Suspect]
     Dosage: UNK
     Route: 048
     Dates: start: 20140427
  9. METAMIZOL [Suspect]
     Dosage: UNK
     Route: 048
  10. METAMIZOL [Suspect]
     Dosage: 5 G, SINGLE
     Route: 048
     Dates: start: 20140427
  11. ETHANOL [Suspect]
     Dosage: UNK
     Route: 048
     Dates: start: 20140427

REACTIONS (3)
  - Suicide attempt [Recovering/Resolving]
  - Intentional overdose [Recovering/Resolving]
  - Vomiting [Recovering/Resolving]
